FAERS Safety Report 16140918 (Version 1)
Quarter: 2019Q2

REPORT INFORMATION
  Report Type: Spontaneous
  Country: US (occurrence: US)
  Receive Date: 20190330
  Receipt Date: 20190330
  Transmission Date: 20190711
  Serious: Yes (Other)
  Sender: FDA-Public Use
  Company Number: None

PATIENT
  Age: 56 Year
  Sex: Female
  Weight: 90 kg

DRUGS (2)
  1. BELVIQ XR [Suspect]
     Active Substance: LORCASERIN HYDROCHLORIDE
     Indication: WEIGHT DECREASED
     Dosage: ?          QUANTITY:30 TABLET(S);?
     Dates: start: 20190129, end: 20190227
  2. LISINOPRIL AND HCTZ [Concomitant]
     Active Substance: HYDROCHLOROTHIAZIDE\LISINOPRIL

REACTIONS (3)
  - Suicidal ideation [None]
  - Depression [None]
  - Fatigue [None]

NARRATIVE: CASE EVENT DATE: 20190227
